FAERS Safety Report 13664288 (Version 8)
Quarter: 2020Q3

REPORT INFORMATION
  Report Type: Spontaneous
  Country: US (occurrence: US)
  Receive Date: 20170619
  Receipt Date: 20200716
  Transmission Date: 20201102
  Serious: Yes (Hospitalization, Other)
  Sender: FDA-Public Use
  Company Number: US-PFIZER INC-2017260916

PATIENT
  Age: 2 Year
  Sex: Male

DRUGS (6)
  1. GENOTROPIN [Suspect]
     Active Substance: SOMATROPIN
     Indication: GROWTH HORMONE DEFICIENCY
     Dosage: 0.6 MG, DAILY
  2. GENOTROPIN [Suspect]
     Active Substance: SOMATROPIN
     Indication: SMALL FOR DATES BABY
     Dosage: 0.6 MG, DAILY [7 DAYS A WEEK]
  3. GENOTROPIN [Suspect]
     Active Substance: SOMATROPIN
     Indication: SHORT STATURE
     Dosage: 4 MG, UNK
     Dates: start: 20160926
  4. GENOTROPIN [Suspect]
     Active Substance: SOMATROPIN
     Indication: SILVER-RUSSELL SYNDROME
     Dosage: 0.5 MG, 1X/DAY
     Route: 058
     Dates: start: 201608
  5. GENOTROPIN [Suspect]
     Active Substance: SOMATROPIN
     Dosage: 0.65 MG, DAILY (7 DAYS A WEEK)
  6. GENOTROPIN [Suspect]
     Active Substance: SOMATROPIN
     Indication: MULTIPLE CONGENITAL ABNORMALITIES
     Dosage: 0.3 MG, DAILY
     Route: 058
     Dates: start: 20160624

REACTIONS (6)
  - Hypoglycaemia [Recovered/Resolved]
  - Blood glucose abnormal [Not Recovered/Not Resolved]
  - Weight decreased [Unknown]
  - Illness [Unknown]
  - Asthma [Unknown]
  - Product prescribing error [Unknown]

NARRATIVE: CASE EVENT DATE: 20160701
